FAERS Safety Report 11138408 (Version 5)
Quarter: 2015Q3

REPORT INFORMATION
  Report Type: Spontaneous
  Country: US (occurrence: US)
  Receive Date: 20150527
  Receipt Date: 20150724
  Transmission Date: 20151125
  Serious: No
  Sender: FDA-Public Use
  Company Number: US-009507513-1505USA006045

PATIENT
  Age: 4 Year
  Sex: Male

DRUGS (3)
  1. TIMOLOL MALEATE. [Suspect]
     Active Substance: TIMOLOL MALEATE
     Indication: GLAUCOMA
     Dosage: DAILY DOSE(S): UNKNOWN
     Route: 047
  2. TRUSOPT [Suspect]
     Active Substance: DORZOLAMIDE HYDROCHLORIDE
     Indication: INTRAOCULAR PRESSURE INCREASED
     Dosage: DAILY DOSE (S): UNKNOWN
  3. ECHOTHIOPHATE IODIDE [Suspect]
     Active Substance: ECHOTHIOPHATE IODIDE
     Indication: INTRAOCULAR PRESSURE INCREASED
     Dosage: UNK
     Route: 065

REACTIONS (2)
  - Intraocular pressure fluctuation [Recovered/Resolved]
  - Drug ineffective [Unknown]
